FAERS Safety Report 16289819 (Version 1)
Quarter: 2019Q2

REPORT INFORMATION
  Report Type: Other
  Country: CA (occurrence: CA)
  Receive Date: 20190509
  Receipt Date: 20190509
  Transmission Date: 20190711
  Serious: Yes (Other)
  Sender: FDA-Public Use
  Company Number: CA-APOTEX-2019AP013442

PATIENT
  Age: 52 Year
  Sex: Female

DRUGS (1)
  1. TAMIOXIFEN [Suspect]
     Active Substance: TAMOXIFEN
     Indication: PRODUCT USED FOR UNKNOWN INDICATION
     Dosage: UNK
     Route: 048

REACTIONS (3)
  - Mediastinal mass [Unknown]
  - Pulmonary mass [Unknown]
  - Malignant neoplasm progression [Unknown]
